FAERS Safety Report 15013187 (Version 5)
Quarter: 2024Q1

REPORT INFORMATION
  Report Type: Spontaneous
  Country: IT (occurrence: IT)
  Receive Date: 20180614
  Receipt Date: 20240217
  Transmission Date: 20240410
  Serious: Yes (Other)
  Sender: FDA-Public Use
  Company Number: IT-ALEXION PHARMACEUTICALS INC-A201807235

PATIENT
  Age: 8 Month

DRUGS (8)
  1. SOLIRIS [Suspect]
     Active Substance: ECULIZUMAB
     Indication: Atypical haemolytic uraemic syndrome
     Dosage: 300 MG, QW, STARTED ON DAY +40
     Route: 065
  2. DEFIBROTIDE [Suspect]
     Active Substance: DEFIBROTIDE (BOVINE)
     Indication: Prophylaxis
     Dosage: 25 MILLIGRAM/KILOGRAM, QD
     Route: 065
  3. DEFIBROTIDE [Suspect]
     Active Substance: DEFIBROTIDE (BOVINE)
     Indication: Venoocclusive disease
  4. DEFIBROTIDE [Suspect]
     Active Substance: DEFIBROTIDE (BOVINE)
     Indication: Off label use
  5. RITUXIMAB [Suspect]
     Active Substance: RITUXIMAB
     Indication: Anti-platelet antibody
     Dosage: 375 MILLIGRAM/SQ. METER, QW
     Route: 065
  6. RITUXIMAB [Suspect]
     Active Substance: RITUXIMAB
     Indication: Anti-complement antibody
  7. BUSULFAN [Suspect]
     Active Substance: BUSULFAN
     Indication: Stem cell transplant
     Dosage: 80 MILLIGRAM/SQ. METER, QID
     Route: 042
  8. BUSULFAN [Suspect]
     Active Substance: BUSULFAN
     Dosage: 375 MILLIGRAM/SQ. METER, QD
     Route: 042

REACTIONS (7)
  - Pulmonary oedema [Unknown]
  - Post procedural haemorrhage [Recovered/Resolved]
  - Bone marrow failure [Recovered/Resolved]
  - Product administration error [Unknown]
  - Atypical haemolytic uraemic syndrome [Recovered/Resolved]
  - Anaemia [Recovered/Resolved]
  - Thrombocytopenia [Recovered/Resolved]
